FAERS Safety Report 4512292-9 (Version None)
Quarter: 2004Q4

REPORT INFORMATION
  Report Type: 
  Country: None (occurrence: None)
  Receive Date: 20041129
  Receipt Date: 20041015
  Transmission Date: 20050328
  Serious: Yes (Hospitalization)
  Sender: FDA-Public Use
  Company Number: JP-GLAXOSMITHKLINE-B0348712A

PATIENT
  Age: 32 Year
  Sex: Female
  Weight: 50 kg

DRUGS (6)
  1. PAXIL [Suspect]
     Indication: PANIC DISORDER
     Dosage: 20MG PER DAY
     Route: 048
     Dates: start: 20041012, end: 20041013
  2. MERISLON [Concomitant]
     Indication: DIZZINESS
     Route: 048
  3. DEPAS [Concomitant]
     Indication: ANXIETY
     Route: 048
  4. LOXONIN [Concomitant]
     Indication: MIGRAINE
     Route: 048
  5. MAGNESIUM OXIDE [Concomitant]
     Indication: CONSTIPATION
     Route: 048
  6. SOLANAX [Concomitant]
     Indication: INSOMNIA
     Route: 048

REACTIONS (13)
  - ARRHYTHMIA [None]
  - CONSCIOUSNESS FLUCTUATING [None]
  - DIARRHOEA [None]
  - DIZZINESS [None]
  - HYPERAESTHESIA [None]
  - HYPERHIDROSIS [None]
  - INSOMNIA [None]
  - NAUSEA [None]
  - PYREXIA [None]
  - SEROTONIN SYNDROME [None]
  - TACHYCARDIA [None]
  - TREMOR [None]
  - VOMITING [None]
